FAERS Safety Report 8579334-5 (Version None)
Quarter: 2012Q3

REPORT INFORMATION
  Report Type: 
  Country: None (occurrence: None)
  Receive Date: 20120808
  Receipt Date: 20120807
  Transmission Date: 20120928
  Serious: Yes (Life-Threatening)
  Sender: FDA-Public Use
  Company Number: CN-ROCHE-1098700

PATIENT
  Age: 74 Year
  Sex: Male
  Weight: 90 kg

DRUGS (1)
  1. MABTHERA [Suspect]
     Indication: LYMPHOMA
     Dosage: 100MG/10ML
     Route: 041
     Dates: start: 20120807, end: 20120807

REACTIONS (3)
  - RALES [None]
  - DYSPNOEA [None]
  - HEART RATE INCREASED [None]
